FAERS Safety Report 10306073 (Version 2)
Quarter: 2015Q1

REPORT INFORMATION
  Report Type: Spontaneous
  Country: US (occurrence: US)
  Receive Date: 20140715
  Receipt Date: 20150120
  Transmission Date: 20150720
  Serious: No
  Sender: FDA-Public Use
  Company Number: US-GILEAD-2014-0108635

PATIENT
  Age: 70 Year
  Sex: Female

DRUGS (1)
  1. LETAIRIS [Suspect]
     Active Substance: AMBRISENTAN
     Indication: PRODUCT USED FOR UNKNOWN INDICATION
     Route: 065
     Dates: start: 20130523

REACTIONS (1)
  - Hypersensitivity [Unknown]
